FAERS Safety Report 15150710 (Version 1)
Quarter: 2018Q3

REPORT INFORMATION
  Report Type: Report from Study
  Country: JP (occurrence: JP)
  Receive Date: 20180716
  Receipt Date: 20180716
  Transmission Date: 20181010
  Serious: Yes (Other)
  Sender: FDA-Public Use
  Company Number: JP-MYLANLABS-2018M1052021

PATIENT
  Age: 37 Year
  Sex: Female

DRUGS (2)
  1. CISPLATIN. [Suspect]
     Active Substance: CISPLATIN
     Dosage: THE DOSE REDUCED IN THE THIRD COURSE DUE TO SPASTICITY
     Route: 065
  2. CISPLATIN. [Suspect]
     Active Substance: CISPLATIN
     Indication: KERATINISING SQUAMOUS CELL CARCINOMA OF NASOPHARYNX
     Dosage: FIRST TWO COURSES
     Route: 065

REACTIONS (2)
  - Muscle spasticity [Recovering/Resolving]
  - Deafness neurosensory [Unknown]
